FAERS Safety Report 6237773-1 (Version None)
Quarter: 2009Q2

REPORT INFORMATION
  Report Type: 
  Country: None (occurrence: None)
  Receive Date: 20090618
  Receipt Date: 20090604
  Transmission Date: 20091009
  Serious: Yes (Life-Threatening, Hospitalization)
  Sender: FDA-Public Use
  Company Number: 2008AL009817

PATIENT
  Age: 60 Year
  Sex: Female

DRUGS (9)
  1. DIGOXIN [Suspect]
     Indication: CARDIAC DISORDER
     Dosage: 0.125MG, PO
     Route: 048
     Dates: start: 19960101
  2. ASPIRIN [Concomitant]
  3. PLAVIX [Concomitant]
  4. COUMADIN [Concomitant]
  5. LASIX [Concomitant]
  6. ISORDIL [Concomitant]
  7. UNIVASC [Concomitant]
  8. XANAX [Concomitant]
  9. TENORMIN [Concomitant]

REACTIONS (4)
  - CAROTID ARTERY STENOSIS [None]
  - CEREBROVASCULAR ACCIDENT [None]
  - CORONARY ARTERY DISEASE [None]
  - THERAPEUTIC AGENT TOXICITY [None]
